FAERS Safety Report 13472723 (Version 2)
Quarter: 2017Q4

REPORT INFORMATION
  Report Type: Spontaneous
  Country: US (occurrence: US)
  Receive Date: 20170424
  Receipt Date: 20171031
  Transmission Date: 20180320
  Serious: No
  Sender: FDA-Public Use
  Company Number: US-ASTRAZENECA-2017SE40742

PATIENT
  Age: 776 Month
  Sex: Male
  Weight: 108.9 kg

DRUGS (1)
  1. SYMBICORT [Suspect]
     Active Substance: BUDESONIDE\FORMOTEROL FUMARATE DIHYDRATE
     Indication: CHRONIC OBSTRUCTIVE PULMONARY DISEASE
     Dosage: 160/4.5 MICROGRAMS, ONE PUFF TWICE DAILY
     Route: 055
     Dates: start: 201704

REACTIONS (7)
  - Product use issue [Unknown]
  - Wrong technique in product usage process [Unknown]
  - Circumstance or information capable of leading to medication error [Unknown]
  - Off label use [Unknown]
  - Intentional device misuse [Unknown]
  - Throat irritation [Unknown]
  - Cough [Unknown]

NARRATIVE: CASE EVENT DATE: 201704
